FAERS Safety Report 8154583-9 (Version None)
Quarter: 2012Q1

REPORT INFORMATION
  Report Type: 
  Country: None (occurrence: None)
  Receive Date: 20120221
  Receipt Date: 20120208
  Transmission Date: 20120608
  Serious: Yes (Hospitalization)
  Sender: FDA-Public Use
  Company Number: KR-ROCHE-1041339

PATIENT
  Age: 63 Year
  Sex: Male
  Weight: 62 kg

DRUGS (1)
  1. ALTEPLASE [Suspect]
     Indication: BRAIN STEM ISCHAEMIA
     Dosage: 6 MG BOLUS FOLLOWED BY MAINTENANCE
     Route: 042

REACTIONS (2)
  - SPINAL CORD COMPRESSION [None]
  - EXTRADURAL HAEMATOMA [None]
